FAERS Safety Report 17597873 (Version 1)
Quarter: 2020Q1

REPORT INFORMATION
  Report Type: Spontaneous
  Country: US (occurrence: US)
  Receive Date: 20200330
  Receipt Date: 20200330
  Transmission Date: 20200409
  Serious: No
  Sender: FDA-Public Use
  Company Number: US-PFIZER INC-2020129928

PATIENT
  Age: 77 Year
  Sex: Female
  Weight: 73.48 kg

DRUGS (2)
  1. PREMARIN [Suspect]
     Active Substance: ESTROGENS, CONJUGATED
     Dosage: A BLUEBERRY SIZED AMOUNT (MEASURED ON THE INSERTION TUBE A 1 OR 1.5) 2 TO 3 TIMES PER WEEK
     Route: 067
     Dates: start: 2019
  2. PREMARIN [Suspect]
     Active Substance: ESTROGENS, CONJUGATED
     Indication: VULVOVAGINAL DRYNESS
     Dosage: A BLUEBERRY SIZED AMOUNT (MEASURED ON THE INSERTION TUBE A 1 OR 1.5) 2 TO 3 TIMES PER WEEK
     Route: 067

REACTIONS (4)
  - Off label use [Unknown]
  - Product residue present [Not Recovered/Not Resolved]
  - Product quality issue [Not Recovered/Not Resolved]
  - Product use issue [Unknown]

NARRATIVE: CASE EVENT DATE: 2019
